FAERS Safety Report 25091141 (Version 1)
Quarter: 2025Q1

REPORT INFORMATION
  Report Type: Report from Study
  Country: US (occurrence: US)
  Receive Date: 20250318
  Receipt Date: 20250318
  Transmission Date: 20250409
  Serious: Yes (Hospitalization)
  Sender: BAYER HEALTHCARE PHARMACEUTICALS INC.
  Company Number: US-BAYER-2025A036974

PATIENT
  Age: 77 Year
  Sex: Female
  Weight: 57.596 kg

DRUGS (8)
  1. ADEMPAS [Suspect]
     Active Substance: RIOCIGUAT
     Indication: Pulmonary arterial hypertension
     Route: 048
     Dates: start: 20241227
  2. ADEMPAS [Suspect]
     Active Substance: RIOCIGUAT
     Indication: Pulmonary arterial hypertension
     Dosage: 2.5 MG, TID
     Route: 048
  3. FUROSEMIDE [Concomitant]
     Active Substance: FUROSEMIDE
  4. VITAMIN D2 [Concomitant]
     Active Substance: ERGOCALCIFEROL
  5. GABAPENTIN [Concomitant]
     Active Substance: GABAPENTIN
  6. LISINOPRIL [Concomitant]
     Active Substance: LISINOPRIL
  7. OXYGEN [Concomitant]
     Active Substance: OXYGEN
  8. AMBRISENTAN [Concomitant]
     Active Substance: AMBRISENTAN

REACTIONS (2)
  - Fall [None]
  - Hip fracture [None]

NARRATIVE: CASE EVENT DATE: 20250313
